FAERS Safety Report 4557991-8 (Version None)
Quarter: 2005Q1

REPORT INFORMATION
  Report Type: 
  Country: None (occurrence: None)
  Receive Date: 20050121
  Receipt Date: 20040421
  Transmission Date: 20050727
  Serious: No
  Sender: FDA-Public Use
  Company Number: US-BRISTOL-MYERS SQUIBB COMPANY-12567368

PATIENT
  Age: 36 Year
  Sex: Male
  Weight: 102 kg

DRUGS (7)
  1. SERZONE [Suspect]
     Dosage: DOSAGE RANGED FROM 50 TO 150 MG TWICE DAILY
     Route: 048
     Dates: start: 19990101, end: 20011001
  2. XANAX [Concomitant]
  3. LIPITOR [Concomitant]
  4. ATACAND [Concomitant]
  5. ATENOLOL [Concomitant]
  6. HYDROCHLOROTHIAZIDE [Concomitant]
  7. DESYREL [Concomitant]

REACTIONS (3)
  - ALANINE AMINOTRANSFERASE INCREASED [None]
  - DIZZINESS [None]
  - FEELING ABNORMAL [None]
